FAERS Safety Report 4558563-1 (Version None)
Quarter: 2005Q1

REPORT INFORMATION
  Report Type: 
  Country: None (occurrence: None)
  Receive Date: 20050121
  Receipt Date: 20050113
  Transmission Date: 20050727
  Serious: Yes (Life-Threatening, Hospitalization)
  Sender: FDA-Public Use
  Company Number: US-BRISTOL-MYERS SQUIBB COMPANY-12826897

PATIENT
  Age: 87 Year
  Sex: Male

DRUGS (5)
  1. DILTIAZEM HCL [Suspect]
  2. PRINIVIL [Suspect]
  3. IBUPROFEN [Suspect]
  4. PROPOXYPHENE HCL [Suspect]
  5. SODIUM POLYSTYRENE SULFONATE [Suspect]

REACTIONS (2)
  - HYPERKALAEMIA [None]
  - RENAL FAILURE [None]
